FAERS Safety Report 9701616 (Version 2)
Quarter: 2014Q1

REPORT INFORMATION
  Report Type: Report from Study
  Country: JP (occurrence: JP)
  Receive Date: 20131121
  Receipt Date: 20140316
  Transmission Date: 20141002
  Serious: Yes (Death, Other)
  Sender: FDA-Public Use
  Company Number: JP-009507513-1311JPN007062

PATIENT
  Age: 77 Year
  Sex: Male

DRUGS (16)
  1. ZOLINZA CAPSULES 100MG [Suspect]
     Indication: MYCOSIS FUNGOIDES
     Dosage: 400 MG, QD
     Route: 048
     Dates: start: 20120330, end: 20120410
  2. ZOLINZA CAPSULES 100MG [Suspect]
     Dosage: 100 MG, QD
     Route: 048
     Dates: start: 20120423, end: 20120509
  3. ZOLINZA CAPSULES 100MG [Suspect]
     Dosage: 100 MG, TIW
     Route: 048
     Dates: start: 20120515, end: 20120617
  4. ZOLINZA CAPSULES 100MG [Suspect]
     Dosage: 100 MG, 5 X PER WEEK
     Route: 048
     Dates: start: 20120618, end: 20120830
  5. ZOLINZA CAPSULES 100MG [Suspect]
     Dosage: 100 MG, QOD
     Route: 048
     Dates: start: 20120831
  6. PREDONINE [Concomitant]
     Indication: MYCOSIS FUNGOIDES
     Dosage: 10 MG, QD
     Route: 048
     Dates: start: 20110809, end: 20120402
  7. PREDONINE [Concomitant]
     Dosage: 40 MG, QD
     Route: 048
     Dates: start: 20120403, end: 20120425
  8. PREDONINE [Concomitant]
     Dosage: 30 MG, QD
     Route: 048
     Dates: start: 20120426, end: 20120514
  9. PREDONINE [Concomitant]
     Dosage: 25 MG, QD
     Route: 048
     Dates: start: 20120515, end: 20120907
  10. ITRIZOLE [Concomitant]
     Indication: PROPHYLAXIS
     Dosage: 20 MG, QD SOLUTION
     Route: 048
     Dates: start: 20120405, end: 20120907
  11. ARGAMATE JELLY [Concomitant]
     Indication: PROPHYLAXIS
     Dosage: 25 G, BID JEL
     Route: 048
     Dates: start: 20120405, end: 20120412
  12. TAMSULOSIN HYDROCHLORIDE [Concomitant]
     Dosage: 0.2 MG, QD
     Route: 048
     Dates: start: 20120405, end: 20120907
  13. MUCOSTA [Concomitant]
     Indication: PROPHYLAXIS
     Dosage: 100 MG, TID
     Route: 048
     Dates: end: 20120411
  14. NAIXAN [Concomitant]
     Indication: MYCOSIS FUNGOIDES
     Dosage: 200 MG, TID
     Route: 048
     Dates: end: 20120411
  15. BIOFERMIN (BACILLUS SUBTILIS (+) LACTOBACILLUS ACIDOPHILUS (+) STREPTO [Concomitant]
     Indication: PROPHYLAXIS
     Dosage: 6 MG, TID
     Route: 048
     Dates: end: 20120907
  16. ALLOPURINOL [Concomitant]
     Indication: PROPHYLAXIS
     Dosage: 100 MG, QD
     Route: 048
     Dates: start: 20120411, end: 20120907

REACTIONS (5)
  - Mycosis fungoides [Fatal]
  - C-reactive protein increased [Recovered/Resolved]
  - Platelet count decreased [Recovered/Resolved]
  - Platelet count decreased [Recovered/Resolved]
  - Platelet count decreased [Recovered/Resolved]
